FAERS Safety Report 18250234 (Version 2)
Quarter: 2020Q4

REPORT INFORMATION
  Report Type: Report from Study
  Country: US (occurrence: US)
  Receive Date: 20200910
  Receipt Date: 20201015
  Transmission Date: 20210113
  Serious: No
  Sender: FDA-Public Use
  Company Number: NVSC2020US243811

PATIENT
  Sex: Female

DRUGS (2)
  1. TABRECTA [Suspect]
     Active Substance: CAPMATINIB
     Dosage: UNK
     Route: 048
  2. TABRECTA [Suspect]
     Active Substance: CAPMATINIB
     Indication: PRODUCT USED FOR UNKNOWN INDICATION
     Dosage: 1 DF, BID
     Route: 048

REACTIONS (8)
  - Oedema peripheral [Unknown]
  - Back pain [Unknown]
  - Nausea [Unknown]
  - Faeces soft [Unknown]
  - Abnormal faeces [Unknown]
  - Madarosis [Unknown]
  - Fall [Unknown]
  - Rhinorrhoea [Unknown]
